FAERS Safety Report 13603702 (Version 1)
Quarter: 2017Q2

REPORT INFORMATION
  Report Type: Spontaneous
  Country: TR (occurrence: TR)
  Receive Date: 20170602
  Receipt Date: 20170602
  Transmission Date: 20170830
  Serious: Yes (Death, Life-Threatening, Hospitalization, Other)
  Sender: FDA-Public Use
  Company Number: TR-MACLEODS PHARMACEUTICALS US LTD-MAC2017005079

PATIENT

DRUGS (1)
  1. AMLODIPINE BESYLATE. [Suspect]
     Active Substance: AMLODIPINE BESYLATE
     Indication: SUICIDE ATTEMPT
     Dosage: 120 MG, UNK
     Route: 048

REACTIONS (12)
  - Hypotension [Fatal]
  - Metabolic acidosis [Fatal]
  - Sinus tachycardia [Fatal]
  - Intentional overdose [Fatal]
  - Pulmonary oedema [Fatal]
  - Toxicity to various agents [Fatal]
  - Condition aggravated [Fatal]
  - Cardiac arrest [Fatal]
  - Sinus bradycardia [Fatal]
  - Loss of consciousness [Fatal]
  - Hypoxia [Fatal]
  - Cardiac disorder [Fatal]
